FAERS Safety Report 20349139 (Version 2)
Quarter: 2022Q1

REPORT INFORMATION
  Report Type: Spontaneous
  Country: US (occurrence: US)
  Receive Date: 20220119
  Receipt Date: 20220131
  Transmission Date: 20220424
  Serious: No
  Sender: FDA-Public Use
  Company Number: US-LUPIN PHARMACEUTICALS INC.-2022-00051

PATIENT
  Sex: Female

DRUGS (1)
  1. ALBUTEROL SULFATE [Suspect]
     Active Substance: ALBUTEROL SULFATE
     Indication: Product used for unknown indication
     Dosage: 2 PUFF PER MOUTH TWICE A DAILY AND CAN INCREASE TO 4 TIMES DEPENDING ON HER ACTIVITY
     Dates: start: 20211203

REACTIONS (2)
  - Device delivery system issue [Unknown]
  - No adverse event [Unknown]
